FAERS Safety Report 15236925 (Version 1)
Quarter: 2018Q3

REPORT INFORMATION
  Report Type: Spontaneous
  Country: US (occurrence: US)
  Receive Date: 20180803
  Receipt Date: 20180803
  Transmission Date: 20181010
  Serious: Yes (Hospitalization, Disabling)
  Sender: FDA-Public Use
  Company Number: US-JNJFOC-20180740336

PATIENT
  Age: 54 Year
  Sex: Male

DRUGS (1)
  1. INVOKANA [Suspect]
     Active Substance: CANAGLIFLOZIN
     Indication: TYPE 2 DIABETES MELLITUS
     Route: 048
     Dates: start: 20140204, end: 201709

REACTIONS (8)
  - Limb amputation [Unknown]
  - Gangrene [Unknown]
  - Osteomyelitis [Unknown]
  - Peripheral ischaemia [Unknown]
  - Necrosis [Unknown]
  - Diabetic ulcer [Unknown]
  - Infection [Unknown]
  - Postoperative wound infection [Unknown]

NARRATIVE: CASE EVENT DATE: 201608
